FAERS Safety Report 11729322 (Version 3)
Quarter: 2016Q1

REPORT INFORMATION
  Report Type: Spontaneous
  Country: JP (occurrence: JP)
  Receive Date: 20151112
  Receipt Date: 20160121
  Transmission Date: 20160525
  Serious: Yes (Life-Threatening)
  Sender: FDA-Public Use
  Company Number: JP-009507513-1511JPN004900

PATIENT
  Age: 75 Year
  Sex: Male

DRUGS (11)
  1. HIRNAMIN (LEVOMEPROMAZINE MALEATE) [Suspect]
     Active Substance: LEVOMEPROMAZINE MALEATE
     Indication: INSOMNIA
     Dosage: 5 MG, QD
     Route: 048
     Dates: start: 20151020, end: 20151022
  2. DUTASTERIDE. [Concomitant]
     Active Substance: DUTASTERIDE
     Indication: BENIGN PROSTATIC HYPERPLASIA
     Dosage: 0.5 MG, QD
     Route: 048
     Dates: start: 201410
  3. LANSOPRAZOLE. [Concomitant]
     Active Substance: LANSOPRAZOLE
     Indication: PROPHYLAXIS
     Dosage: 15 MG, QD
     Route: 048
     Dates: start: 201510
  4. REFLEX [Suspect]
     Active Substance: MIRTAZAPINE
     Indication: INSOMNIA
     Dosage: 30 MG, QD IN 2 DIVIDED DOSES
     Route: 048
     Dates: start: 20151023, end: 20151030
  5. CILOSTAZOL. [Concomitant]
     Active Substance: CILOSTAZOL
     Indication: BRADYCARDIA
  6. SILODOSIN [Concomitant]
     Active Substance: SILODOSIN
     Indication: DYSURIA
     Dosage: 8 MG, QD
     Route: 048
     Dates: start: 2013
  7. FAMOTIDINE. [Concomitant]
     Active Substance: FAMOTIDINE
     Indication: PROPHYLAXIS
     Dosage: UNK
     Route: 048
     Dates: start: 2012, end: 201510
  8. APIXABAN [Concomitant]
     Active Substance: APIXABAN
     Indication: PROPHYLAXIS
     Dosage: 5 MG, QD
     Route: 048
     Dates: start: 20150605
  9. REFLEX [Suspect]
     Active Substance: MIRTAZAPINE
     Indication: DEPRESSION
  10. HIRNAMIN (LEVOMEPROMAZINE MALEATE) [Suspect]
     Active Substance: LEVOMEPROMAZINE MALEATE
     Dosage: 10 MG, QD
     Route: 048
     Dates: start: 20151023
  11. CILOSTAZOL. [Concomitant]
     Active Substance: CILOSTAZOL
     Indication: POLYCYTHAEMIA
     Dosage: 200 MG, QD
     Route: 048
     Dates: start: 2014

REACTIONS (1)
  - Ventricular tachycardia [Recovered/Resolved]

NARRATIVE: CASE EVENT DATE: 20151030
